FAERS Safety Report 21497486 (Version 5)
Quarter: 2023Q1

REPORT INFORMATION
  Report Type: Report from Study
  Country: US (occurrence: US)
  Receive Date: 20221024
  Receipt Date: 20230117
  Transmission Date: 20230418
  Serious: Yes (Other)
  Sender: FDA-Public Use
  Company Number: US-BEH-2022150590

PATIENT
  Age: 45 Year
  Sex: Female
  Weight: 90.703 kg

DRUGS (2)
  1. HIZENTRA [Suspect]
     Active Substance: HUMAN IMMUNOGLOBULIN G
     Indication: Primary immunodeficiency syndrome
     Dosage: 14 GRAM, QW
     Route: 058
     Dates: start: 20220914
  2. HIZENTRA [Suspect]
     Active Substance: HUMAN IMMUNOGLOBULIN G
     Dosage: UNK
     Route: 058
     Dates: start: 202210

REACTIONS (14)
  - Cough [Unknown]
  - Infusion site erythema [Recovered/Resolved]
  - Infusion site swelling [Unknown]
  - Renal pain [Unknown]
  - Diarrhoea [Recovered/Resolved]
  - Renal pain [Recovered/Resolved]
  - Fluid retention [Unknown]
  - Hydronephrosis [Recovered/Resolved]
  - Renal pain [Recovering/Resolving]
  - Energy increased [Not Recovered/Not Resolved]
  - Headache [Recovered/Resolved]
  - Headache [Unknown]
  - Feeling abnormal [Unknown]
  - Insurance issue [Unknown]

NARRATIVE: CASE EVENT DATE: 20220928
